FAERS Safety Report 17420113 (Version 1)
Quarter: 2020Q1

REPORT INFORMATION
  Report Type: Spontaneous
  Country: US (occurrence: US)
  Receive Date: 20200214
  Receipt Date: 20200214
  Transmission Date: 20200409
  Serious: No
  Sender: FDA-Public Use
  Company Number: US-PFIZER INC-2020063571

PATIENT
  Age: 17 Year

DRUGS (3)
  1. PREDNISONE. [Suspect]
     Active Substance: PREDNISONE
     Dosage: UNK
  2. SOLU-MEDROL [Suspect]
     Active Substance: METHYLPREDNISOLONE SODIUM SUCCINATE
     Dosage: UNK
  3. BENADRYL [Suspect]
     Active Substance: DIPHENHYDRAMINE HYDROCHLORIDE
     Dosage: UNK

REACTIONS (6)
  - Nausea [Unknown]
  - Antibody test negative [Unknown]
  - Antibody test positive [Unknown]
  - Diarrhoea [Unknown]
  - Abdominal pain [Unknown]
  - Vomiting [Unknown]
